FAERS Safety Report 6184592-0 (Version None)
Quarter: 2009Q2

REPORT INFORMATION
  Report Type: 
  Country: None (occurrence: None)
  Receive Date: 20090508
  Receipt Date: 20090428
  Transmission Date: 20091009
  Serious: No
  Sender: FDA-Public Use
  Company Number: PHHY2009JP12488

PATIENT
  Age: 73 Year
  Sex: Male

DRUGS (14)
  1. VOLTAREN [Suspect]
     Indication: HEADACHE
     Dosage: 2 DF
     Route: 048
     Dates: start: 20090320
  2. VOLTAREN [Suspect]
     Indication: BACK PAIN
  3. BENZODIAZEPINE DERIVATIVES [Concomitant]
  4. CERCINE [Concomitant]
     Dosage: 5.0 MG
     Route: 048
     Dates: start: 20090313
  5. ROHYPNOL [Concomitant]
     Dosage: 1 MG
     Route: 048
     Dates: start: 20080101
  6. MYSLEE [Concomitant]
     Dosage: 10 MG
     Route: 048
     Dates: start: 20090320
  7. MADOPAR [Concomitant]
  8. TOLTERODINE TARTRATE [Concomitant]
     Dosage: UNK
  9. FLIVAS [Concomitant]
  10. FAMOGAST [Concomitant]
  11. CYANOCOBALAMIN [Concomitant]
  12. MAGLAX [Concomitant]
  13. ALOSENN [Concomitant]
  14. TPN [Concomitant]

REACTIONS (1)
  - DYSSTASIA [None]
